FAERS Safety Report 7134979-4 (Version None)
Quarter: 2010Q4

REPORT INFORMATION
  Report Type: 
  Country: None (occurrence: None)
  Receive Date: 20101203
  Receipt Date: 20101125
  Transmission Date: 20110411
  Serious: Yes (Other)
  Sender: FDA-Public Use
  Company Number: ES-JNJFOC-20101200146

PATIENT
  Sex: Female
  Weight: 56 kg

DRUGS (3)
  1. PREZISTA [Suspect]
     Indication: HIV INFECTION
     Route: 048
  2. PREZISTA [Suspect]
     Route: 048
  3. TRUVADA [Concomitant]
     Indication: HIV INFECTION

REACTIONS (2)
  - DYSGEUSIA [None]
  - VERTIGO [None]
